FAERS Safety Report 5133068-8 (Version None)
Quarter: 2006Q4

REPORT INFORMATION
  Report Type: 
  Country: None (occurrence: None)
  Receive Date: 20061017
  Receipt Date: 20061004
  Transmission Date: 20070319
  Serious: Yes (Hospitalization, Other)
  Sender: FDA-Public Use
  Company Number: 2006087877

PATIENT
  Age: 66 Year
  Sex: Male
  Weight: 48.7 kg

DRUGS (11)
  1. SUTENT [Suspect]
     Indication: RENAL CELL CARCINOMA STAGE UNSPECIFIED
     Dosage: 50 MG (50 MG, 1 IN 1 D), ORAL
     Route: 048
     Dates: start: 20060701
  2. LANSPRAZOLE (LANSOPRAZOLE) [Concomitant]
  3. MISOPROSTOL [Concomitant]
  4. MOSAPRIDE CITRATE (MOSAPRIDE CITRATE) [Concomitant]
  5. ITOPRIDE HYDROCHLORIDE (ITOPRIDE HYDROCHLORIDE) [Concomitant]
  6. TEPRENONE (TEPRENONE) [Concomitant]
  7. SOLITA-T1 INJECTION (GLUCOSE, SODIUM CHLORIDE, SODIUM LACTATE) [Concomitant]
  8. VEEN D (CALCIUM CHLORIDE DIHYDRATE, GLUCOSE, POTASSIUM CHLORIDE, SODIU [Concomitant]
  9. AMINOFLUID (AMINO ACIDS NOS, ELECTROLYTES NOS, GLUCOSE) [Concomitant]
  10. VALSARTAN [Concomitant]
  11. NIFEDIPINE [Concomitant]

REACTIONS (9)
  - BLOOD ELECTROLYTES ABNORMAL [None]
  - BLOOD PH INCREASED [None]
  - BLOOD PRESSURE INCREASED [None]
  - HYPOCALCAEMIA [None]
  - HYPOKALAEMIA [None]
  - HYPOMAGNESAEMIA [None]
  - RENAL IMPAIRMENT [None]
  - URINE OUTPUT DECREASED [None]
  - VOMITING [None]
